FAERS Safety Report 4517737-6 (Version None)
Quarter: 2004Q4

REPORT INFORMATION
  Report Type: 
  Country: None (occurrence: None)
  Receive Date: 20041201
  Receipt Date: 20041201
  Transmission Date: 20050328
  Serious: Yes (Disabling)
  Sender: FDA-Public Use
  Company Number: None

PATIENT
  Age: 52 Year
  Sex: Female
  Weight: 74.8435 kg

DRUGS (2)
  1. VIOXX [Suspect]
     Indication: PAIN
     Dates: start: 20040414
  2. VIOXX [Suspect]
     Indication: PAIN
     Dates: start: 20040808

REACTIONS (4)
  - ARTERIAL THROMBOSIS [None]
  - EYE HAEMORRHAGE [None]
  - IMPAIRED WORK ABILITY [None]
  - VISUAL DISTURBANCE [None]
